FAERS Safety Report 19067156 (Version 1)
Quarter: 2021Q1

REPORT INFORMATION
  Report Type: Spontaneous
  Country: US (occurrence: US)
  Receive Date: 20210329
  Receipt Date: 20210329
  Transmission Date: 20210420
  Serious: No
  Sender: FDA-Public Use
  Company Number: US-AUROBINDO-AUR-APL-2021-006634

PATIENT
  Age: 23 Year
  Sex: Male
  Weight: 86.1 kg

DRUGS (2)
  1. OMEPRAZOLE 20 MG DELAYED RELEASE TABLETS [Suspect]
     Active Substance: OMEPRAZOLE
     Indication: CHEST PAIN
     Dosage: 1 DOSAGE FORM, ONCE A DAY
     Route: 048
     Dates: start: 20210114
  2. OMEPRAZOLE 20 MG DELAYED RELEASE TABLETS [Suspect]
     Active Substance: OMEPRAZOLE
     Indication: ABDOMINAL DISCOMFORT
     Dosage: 20 MILLIGRAM, ONCE A DAY
     Route: 048
     Dates: start: 20210115

REACTIONS (4)
  - Product use in unapproved indication [Unknown]
  - Drug ineffective [Unknown]
  - Faeces discoloured [Not Recovered/Not Resolved]
  - Chest pain [Not Recovered/Not Resolved]

NARRATIVE: CASE EVENT DATE: 20210114
